FAERS Safety Report 24053015 (Version 1)
Quarter: 2024Q3

REPORT INFORMATION
  Report Type: Spontaneous
  Country: IR (occurrence: IR)
  Receive Date: 20240705
  Receipt Date: 20240705
  Transmission Date: 20241016
  Serious: Yes (Death, Life-Threatening, Hospitalization, Other)
  Sender: ALKEM
  Company Number: IR-ALKEM LABORATORIES LIMITED-IR-ALKEM-2024-14104

PATIENT
  Age: 20 Year
  Sex: Male

DRUGS (1)
  1. LIDOCAINE [Suspect]
     Active Substance: LIDOCAINE
     Indication: Suicidal ideation
     Dosage: 250 MILLIGRAM
     Route: 065

REACTIONS (7)
  - Toxicity to various agents [Fatal]
  - Cardiac arrest [Fatal]
  - Status epilepticus [Fatal]
  - Hypoxic-ischaemic encephalopathy [Unknown]
  - Ventricular tachycardia [Unknown]
  - Depressed level of consciousness [Unknown]
  - Metabolic acidosis [Unknown]
